FAERS Safety Report 8547981-2 (Version None)
Quarter: 2012Q3

REPORT INFORMATION
  Report Type: 
  Country: None (occurrence: None)
  Receive Date: 20120729
  Receipt Date: 20120718
  Transmission Date: 20120928
  Serious: Yes (Disabling)
  Sender: FDA-Public Use
  Company Number: US-009507513-1207USA005749

PATIENT

DRUGS (3)
  1. FOSAMAX [Suspect]
     Dosage: UNK
     Route: 048
     Dates: start: 20100901, end: 20101201
  2. FOSAMAX [Suspect]
     Dosage: UNK
     Route: 048
     Dates: start: 20030101, end: 20081101
  3. FOSAMAX [Suspect]
     Dosage: UNK
     Route: 048
     Dates: start: 20081201, end: 20100901

REACTIONS (2)
  - LOW TURNOVER OSTEOPATHY [None]
  - FEMUR FRACTURE [None]
